FAERS Safety Report 4523829-8 (Version None)
Quarter: 2004Q4

REPORT INFORMATION
  Report Type: 
  Country: None (occurrence: None)
  Receive Date: 20041101
  Receipt Date: 20040521
  Transmission Date: 20050328
  Serious: Yes (Other)
  Sender: FDA-Public Use
  Company Number: US077736

PATIENT
  Age: 52 Year
  Sex: Female
  Weight: 46.8 kg

DRUGS (6)
  1. PROCRIT [Suspect]
     Indication: ANAEMIA OF MALIGNANT DISEASE
     Dosage: 60000 IU, 1 IN 1 WEEKS, SC
     Route: 058
     Dates: start: 20040501
  2. CYTARABINE [Concomitant]
  3. VINCRISTINE SULFATE [Concomitant]
  4. CYCLOPHOSPHAMIDE [Concomitant]
  5. METHOTREXATE [Concomitant]
  6. MERCAPTOPURINE [Concomitant]

REACTIONS (3)
  - ACUTE LYMPHOCYTIC LEUKAEMIA [None]
  - MALIGNANT NEOPLASM OF SPINAL CORD [None]
  - THERAPEUTIC RESPONSE DELAYED [None]
